FAERS Safety Report 7501760-3 (Version None)
Quarter: 2011Q2

REPORT INFORMATION
  Report Type: 
  Country: None (occurrence: None)
  Receive Date: 20110523
  Receipt Date: 20110523
  Transmission Date: 20111010
  Serious: Yes (Hospitalization)
  Sender: FDA-Public Use
  Company Number: None

PATIENT
  Age: 85 Year
  Sex: Female
  Weight: 55 kg

DRUGS (9)
  1. PREDNISONE [Suspect]
     Dosage: PO  RECENT
     Route: 048
  2. TAMBOCOR [Concomitant]
  3. SIMVASTATIN [Concomitant]
  4. WARFARIN SODIUM [Suspect]
     Indication: PULMONARY EMBOLISM
     Dosage: 4MG DAILY PO
     Route: 048
     Dates: start: 20110201
  5. WARFARIN SODIUM [Suspect]
     Indication: DEEP VEIN THROMBOSIS
     Dosage: 4MG DAILY PO
     Route: 048
     Dates: start: 20110201
  6. MULTIVITAMIN [Concomitant]
  7. VIT D [Concomitant]
  8. LANOXIN [Concomitant]
  9. IMURAN [Concomitant]

REACTIONS (7)
  - OESOPHAGITIS ULCERATIVE [None]
  - HIATUS HERNIA [None]
  - INTERNATIONAL NORMALISED RATIO INCREASED [None]
  - DEEP VEIN THROMBOSIS [None]
  - DYSPNOEA [None]
  - ANAEMIA [None]
  - UPPER GASTROINTESTINAL HAEMORRHAGE [None]
